FAERS Safety Report 12846162 (Version 1)
Quarter: 2016Q4

REPORT INFORMATION
  Report Type: Spontaneous
  Country: US (occurrence: US)
  Receive Date: 20161014
  Receipt Date: 20161014
  Transmission Date: 20170207
  Serious: Yes (Other)
  Sender: FDA-Public Use
  Company Number: US-AMGEN-USASP2016128750

PATIENT
  Age: 57 Year
  Sex: Female
  Weight: 70.3 kg

DRUGS (13)
  1. INVOKANA [Concomitant]
     Active Substance: CANAGLIFLOZIN
     Dosage: UNK UNK, AS NECESSARY
  2. VITAMIN B COMPLEX [Concomitant]
     Active Substance: CYANOCOBALAMIN\DEXPANTHENOL\NIACINAMIDE\PYRIDOXINE HYDROCHLORIDE\RIBOFLAVIN 5^-PHOSPHATE SODIUM\THIAMINE HYDROCHLORIDE\VITAMIN B COMPLEX
  3. FISH OIL [Concomitant]
     Active Substance: FISH OIL
  4. INSULIN [Concomitant]
     Active Substance: INSULIN NOS
     Indication: DIABETES MELLITUS
  5. COQ 10 [Concomitant]
     Active Substance: UBIDECARENONE
  6. ASPIRIN. [Concomitant]
     Active Substance: ASPIRIN
     Dosage: 162 MG, UNK
  7. LOSARTAN. [Concomitant]
     Active Substance: LOSARTAN
     Indication: HYPERTENSION
  8. LOVENOX [Concomitant]
     Active Substance: ENOXAPARIN SODIUM
     Indication: DEEP VEIN THROMBOSIS
  9. SINGULAIR [Concomitant]
     Active Substance: MONTELUKAST SODIUM
     Dosage: UNK UNK, AS NECESSARY
  10. ADVAIR HFA [Concomitant]
     Active Substance: FLUTICASONE PROPIONATE\SALMETEROL XINAFOATE
     Dosage: UNK UNK, AS NECESSARY
  11. DIOVAN HCT [Concomitant]
     Active Substance: HYDROCHLOROTHIAZIDE\VALSARTAN
  12. METFORMIN [Concomitant]
     Active Substance: METFORMIN HYDROCHLORIDE
     Dosage: UNK UNK, BID
  13. REPATHA [Suspect]
     Active Substance: EVOLOCUMAB
     Indication: HYPERLIPIDAEMIA
     Dosage: 140 MG/ML, Q2WK
     Route: 058
     Dates: start: 201605, end: 201609

REACTIONS (10)
  - Abasia [Unknown]
  - Chest pain [Recovered/Resolved]
  - Pain [Unknown]
  - Pain in jaw [Unknown]
  - Paralysis [Unknown]
  - Hyperhidrosis [Recovered/Resolved]
  - Mobility decreased [Recovered/Resolved]
  - Palpitations [Recovered/Resolved]
  - Dyspnoea [Recovered/Resolved]
  - Nausea [Recovered/Resolved]

NARRATIVE: CASE EVENT DATE: 2016
